FAERS Safety Report 8456014-8 (Version None)
Quarter: 2012Q2

REPORT INFORMATION
  Report Type: 
  Country: None (occurrence: None)
  Receive Date: 20120621
  Receipt Date: 20120615
  Transmission Date: 20120825
  Serious: Yes (Hospitalization, Other)
  Sender: FDA-Public Use
  Company Number: PHEH2012US011695

PATIENT
  Sex: Female

DRUGS (15)
  1. LEXAPRO [Concomitant]
  2. LIPITOR [Concomitant]
     Dosage: 20 MG, QD
     Route: 048
  3. CELEXA [Concomitant]
     Dosage: 40 MG/DAY
  4. ERGOCALCIFEROL [Concomitant]
     Dosage: 50,000  ONCE WEEKLY
  5. ZOCOR [Concomitant]
     Dosage: 40 MG 1 QHS
  6. MULTI-VITAMINS [Concomitant]
     Dosage: ONCE DAILY
  7. VITAMIN D [Concomitant]
  8. ASPIRIN [Concomitant]
     Dosage: 81 MG, UNK
  9. ATORVASTATIN CALCIUM [Concomitant]
  10. BENEFIBER [Concomitant]
  11. CITALOPRAM HYDROBROMIDE [Concomitant]
     Dosage: 40 MG, QD
  12. ANXIOLYTICS [Concomitant]
  13. CALCIUM [Concomitant]
  14. VALTURNA [Suspect]
     Indication: HYPERTENSION
     Dosage: 320/300 MG (320 MG VALS AND 300 MG ALIS) DAILY
     Route: 048
     Dates: start: 20100101, end: 20120417
  15. SIMVASTATIN [Concomitant]

REACTIONS (2)
  - BLOOD PRESSURE INCREASED [None]
  - CONJUNCTIVAL HAEMORRHAGE [None]
